FAERS Safety Report 9087324 (Version 2)
Quarter: 2013Q1

REPORT INFORMATION
  Report Type: Spontaneous
  Country: JP (occurrence: JP)
  Receive Date: 20130131
  Receipt Date: 20130313
  Transmission Date: 20140127
  Serious: Yes (Life-Threatening, Hospitalization, Other)
  Sender: FDA-Public Use
  Company Number: JP-PFIZER INC-2012258213

PATIENT
  Age: 50 Year
  Sex: Male
  Weight: 86 kg

DRUGS (7)
  1. SUTENT [Suspect]
     Indication: RENAL CELL CARCINOMA
     Dosage: 50 MG, 1X/DAY, CYCLE 4/2 WEEKS
     Route: 048
     Dates: start: 20110916, end: 20121128
  2. OXYCONTIN [Concomitant]
     Indication: CANCER PAIN
     Dosage: 10 MG, 2X/DAY
     Route: 048
     Dates: start: 20110117
  3. CELECOX [Concomitant]
     Indication: CANCER PAIN
     Dosage: 100 MG, 2X/DAY
     Route: 048
     Dates: start: 20110909
  4. FAMOTIDINE [Concomitant]
     Indication: GASTRITIS
     Dosage: 20 MG, 2X/DAY
     Route: 048
     Dates: start: 20111006
  5. MAGNESIUM OXIDE [Concomitant]
     Indication: CONSTIPATION
     Dosage: 0.66 G, 3X/DAY
     Route: 048
     Dates: start: 20111113
  6. LENDORMIN [Concomitant]
     Indication: INSOMNIA
     Dosage: 0.25 MG, 1X/DAY
     Route: 048
     Dates: start: 20111019
  7. ZOMETA [Concomitant]
     Indication: METASTASES TO BONE
     Dosage: 4 MG, 1X/DAY
     Route: 041
     Dates: start: 20111019

REACTIONS (4)
  - Pyomyositis [Recovered/Resolved]
  - Neutrophil count decreased [Recovered/Resolved]
  - Hypothyroidism [Recovering/Resolving]
  - Hypertension [Recovering/Resolving]
